FAERS Safety Report 8077043-2 (Version None)
Quarter: 2012Q1

REPORT INFORMATION
  Report Type: 
  Country: None (occurrence: None)
  Receive Date: 20120127
  Receipt Date: 20120119
  Transmission Date: 20120608
  Serious: Yes (Other)
  Sender: FDA-Public Use
  Company Number: PHHY2012BR005101

PATIENT
  Age: 50 Year
  Sex: Male

DRUGS (3)
  1. ALBENDAZOLE [Concomitant]
  2. CARBAMAZEPINE [Suspect]
     Indication: CONVULSION
     Dates: start: 20090501, end: 20091201
  3. PREDNISOLONE [Concomitant]

REACTIONS (8)
  - OEDEMA [None]
  - MALAISE [None]
  - DRUG INEFFECTIVE [None]
  - HEADACHE [None]
  - DIZZINESS [None]
  - PANIC DISORDER [None]
  - IDIOSYNCRATIC DRUG REACTION [None]
  - NEUROCYSTICERCOSIS [None]
